FAERS Safety Report 5138503-7 (Version None)
Quarter: 2006Q4

REPORT INFORMATION
  Report Type: 
  Country: None (occurrence: None)
  Receive Date: 20061030
  Receipt Date: 20060306
  Transmission Date: 20070319
  Serious: No
  Sender: FDA-Public Use
  Company Number: US-GLAXOSMITHKLINE-A0596276A

PATIENT
  Age: 70 Year
  Sex: Female

DRUGS (7)
  1. ADVAIR HFA [Suspect]
     Indication: ASTHMA
     Dosage: 1PUFF TWICE PER DAY
     Route: 055
  2. PRAVACHOL [Concomitant]
  3. MIRALAX [Concomitant]
  4. NEXIUM [Concomitant]
  5. SYNTHROID [Concomitant]
  6. BENTYL [Concomitant]
  7. ALBUTEROL [Concomitant]

REACTIONS (1)
  - MUSCLE SPASMS [None]
